FAERS Safety Report 24222927 (Version 1)
Quarter: 2024Q3

REPORT INFORMATION
  Report Type: Spontaneous
  Country: US (occurrence: None)
  Receive Date: 20240816
  Receipt Date: 20240816
  Transmission Date: 20241016
  Serious: Yes (Hospitalization, Other)
  Sender: Public
  Company Number: None

PATIENT
  Age: 42 Year
  Sex: Female
  Weight: 69.75 kg

DRUGS (6)
  1. EMGALITY [Suspect]
     Active Substance: GALCANEZUMAB-GNLM
     Indication: Migraine
     Dosage: OTHER QUANTITY : 2 INJECTION(S);?FREQUENCY : MONTHLY;?
     Route: 058
     Dates: start: 20240706, end: 20240706
  2. ARMODAFINIL [Concomitant]
     Active Substance: ARMODAFINIL
  3. PREGABALIN [Concomitant]
     Active Substance: PREGABALIN
  4. PROBIOTICS NOS [Concomitant]
     Active Substance: PROBIOTICS NOS
  5. IBUPROFEN [Concomitant]
     Active Substance: IBUPROFEN
  6. women^s-one-a-day vitamin [Concomitant]

REACTIONS (6)
  - Heart rate increased [None]
  - Blood pressure increased [None]
  - Dizziness [None]
  - Epinephrine increased [None]
  - Anxiety [None]
  - Panic attack [None]

NARRATIVE: CASE EVENT DATE: 20240706
